FAERS Safety Report 5507054-X (Version None)
Quarter: 2007Q4

REPORT INFORMATION
  Report Type: 
  Country: None (occurrence: None)
  Receive Date: 20071105
  Receipt Date: 20071012
  Transmission Date: 20080405
  Serious: No
  Sender: FDA-Public Use
  Company Number: US-BOEHRINGER INGELHEIM PHARMACEUTICALS, INC.-2007-BP-19148BP

PATIENT
  Sex: Female

DRUGS (12)
  1. SPIRIVA [Suspect]
     Indication: CHRONIC OBSTRUCTIVE PULMONARY DISEASE
     Route: 055
     Dates: start: 20070601
  2. SPIRIVA [Suspect]
     Indication: ASTHMA
  3. SINGULAIR [Concomitant]
  4. WELLBUTRIN [Concomitant]
  5. ALBUTEROL [Concomitant]
  6. FLOVENT [Concomitant]
  7. FLEXERIL [Concomitant]
  8. ADVAIR DISKUS 100/50 [Concomitant]
  9. AZMACORT [Concomitant]
  10. PRILOSEC [Concomitant]
  11. NEXIUM [Concomitant]
  12. DETROL [Concomitant]

REACTIONS (2)
  - DYSPNOEA [None]
  - FATIGUE [None]
